FAERS Safety Report 23079620 (Version 3)
Quarter: 2023Q4

REPORT INFORMATION
  Report Type: Spontaneous
  Country: US (occurrence: US)
  Receive Date: 20231018
  Receipt Date: 20231113
  Transmission Date: 20240109
  Serious: Yes (Other)
  Sender: FDA-Public Use
  Company Number: US-ABBVIE-5448715

PATIENT
  Age: 86 Year
  Sex: Female

DRUGS (4)
  1. LINZESS [Suspect]
     Active Substance: LINACLOTIDE
     Indication: Irritable bowel syndrome
     Dosage: START DATE TEXT: 7-8 YEARS?FORM STRENGTH: 290 MICROGRAM
     Route: 048
     Dates: end: 202310
  2. LINZESS [Suspect]
     Active Substance: LINACLOTIDE
     Indication: Irritable bowel syndrome
     Dosage: FORM STRENGTH: 290 MICROGRAM
     Route: 048
     Dates: start: 202310
  3. DOMPERIDONE [Concomitant]
     Active Substance: DOMPERIDONE
     Indication: Vomiting
  4. DIAZEPAM [Concomitant]
     Active Substance: DIAZEPAM
     Indication: Sleep disorder therapy

REACTIONS (16)
  - Cataract [Recovering/Resolving]
  - Intentional product misuse [Not Recovered/Not Resolved]
  - Abnormal faeces [Unknown]
  - Diarrhoea [Recovering/Resolving]
  - Underweight [Not Recovered/Not Resolved]
  - Proctalgia [Recovered/Resolved]
  - Constipation [Recovering/Resolving]
  - Nasopharyngitis [Recovered/Resolved]
  - Abdominal pain upper [Not Recovered/Not Resolved]
  - Nausea [Recovered/Resolved]
  - Discomfort [Not Recovered/Not Resolved]
  - Drug ineffective [Not Recovered/Not Resolved]
  - Irritability [Recovering/Resolving]
  - Faeces discoloured [Recovering/Resolving]
  - Glaucoma [Not Recovered/Not Resolved]
  - Product use in unapproved indication [Unknown]

NARRATIVE: CASE EVENT DATE: 20231001
